FAERS Safety Report 18525432 (Version 1)
Quarter: 2020Q4

REPORT INFORMATION
  Report Type: Spontaneous
  Country: US (occurrence: US)
  Receive Date: 20201120
  Receipt Date: 20201120
  Transmission Date: 20210114
  Serious: No
  Sender: FDA-Public Use
  Company Number: US-ALVOGEN-2020-ALVOGEN-115225

PATIENT
  Age: 52 Year
  Sex: Female
  Weight: 90.25 kg

DRUGS (1)
  1. CLINDAMYCIN. [Suspect]
     Active Substance: CLINDAMYCIN
     Indication: ORAL INFECTION
     Dosage: 300 MG, 3X/DAY
     Route: 042

REACTIONS (2)
  - Off label use [Unknown]
  - Product use issue [Unknown]
